FAERS Safety Report 21578233 (Version 3)
Quarter: 2022Q4

REPORT INFORMATION
  Report Type: Spontaneous
  Country: US (occurrence: US)
  Receive Date: 20221110
  Receipt Date: 20221222
  Transmission Date: 20230113
  Serious: No
  Sender: FDA-Public Use
  Company Number: US-PFIZER INC-202201280963

PATIENT
  Age: 14 Year
  Sex: Male
  Weight: 47.63 kg

DRUGS (2)
  1. GENOTROPIN [Suspect]
     Active Substance: SOMATROPIN
     Indication: Growth hormone deficiency
     Dosage: 2 MG (INJECTION INTO TOP OF THIGHS, UPPER ARM AREA, IN BUTTOCKS; ROTATE IT AROUND)
  2. GENOTROPIN [Suspect]
     Active Substance: SOMATROPIN
     Indication: Trisomy 21

REACTIONS (3)
  - Device issue [Not Recovered/Not Resolved]
  - Device mechanical issue [Not Recovered/Not Resolved]
  - Device information output issue [Not Recovered/Not Resolved]
